FAERS Safety Report 26107226 (Version 1)
Quarter: 2025Q4

REPORT INFORMATION
  Report Type: Spontaneous
  Country: EU (occurrence: EU)
  Receive Date: 20251201
  Receipt Date: 20251201
  Transmission Date: 20260118
  Serious: Yes (Other)
  Sender: TEVA
  Company Number: None

PATIENT
  Age: 63 Year
  Sex: Female

DRUGS (2)
  1. AMOXICILLIN\CLAVULANIC ACID [Suspect]
     Active Substance: AMOXICILLIN\CLAVULANIC ACID
     Indication: Respiratory tract infection
     Dosage: 500 MG/ 125 MG ORAL SOLUTION/SUSPENSION 30 SACHETS
     Route: 048
     Dates: start: 20251028, end: 20251101
  2. SYMBICORT [Suspect]
     Active Substance: BUDESONIDE\FORMOTEROL FUMARATE DIHYDRATE
     Indication: Respiratory tract infection
     Dosage: 2 INHALASTIONS EVERY 12 HOURS; SYMBICORT TURBUHALER 80 MICROGRAMS/4.5 MICROGRAMS/INHALATION, 1 IN...
     Route: 065
     Dates: start: 20251028, end: 20251101

REACTIONS (1)
  - Oropharyngeal candidiasis [Recovering/Resolving]

NARRATIVE: CASE EVENT DATE: 20251101
